FAERS Safety Report 8591642-0 (Version None)
Quarter: 2012Q3

REPORT INFORMATION
  Report Type: 
  Country: None (occurrence: None)
  Receive Date: 20120814
  Receipt Date: 20120806
  Transmission Date: 20120928
  Serious: Yes (Life-Threatening, Other)
  Sender: FDA-Public Use
  Company Number: JP-JNJFOC-20120703473

PATIENT
  Sex: Male

DRUGS (4)
  1. LACTEC-G [Concomitant]
     Indication: FLUID REPLACEMENT
     Route: 041
     Dates: start: 20120628, end: 20120702
  2. DORIPENEM MONOHYDRATE [Suspect]
     Indication: PNEUMONIA ASPIRATION
     Dosage: 0.25 G THREE TIMES DAILY TOTALLING TO 0.75 GRAMS/DAY
     Route: 041
     Dates: start: 20120627, end: 20120702
  3. SOLU-MEDROL [Concomitant]
     Indication: RESPIRATORY FAILURE
     Route: 041
     Dates: start: 20120627, end: 20120629
  4. PHYSIOSOL [Concomitant]
     Indication: FLUID REPLACEMENT
     Route: 041
     Dates: start: 20120628, end: 20120702

REACTIONS (4)
  - RENAL IMPAIRMENT [None]
  - ENTERITIS [None]
  - PANCREATIC DISORDER [None]
  - PLATELET COUNT DECREASED [None]
